FAERS Safety Report 6788615-7 (Version None)
Quarter: 2010Q2

REPORT INFORMATION
  Report Type: 
  Country: None (occurrence: None)
  Receive Date: 20100623
  Receipt Date: 20080621
  Transmission Date: 20101027
  Serious: No
  Sender: FDA-Public Use
  Company Number: US-PFIZER INC-2008025382

PATIENT
  Sex: Female

DRUGS (4)
  1. XALATAN [Suspect]
     Indication: MACULOPATHY
     Dates: start: 20050901
  2. XALATAN [Suspect]
     Indication: GLAUCOMA
  3. COSOPT [Concomitant]
     Indication: GLAUCOMA
  4. BRIMONIDINE TARTRATE [Concomitant]
     Indication: GLAUCOMA

REACTIONS (1)
  - HEARING IMPAIRED [None]
